FAERS Safety Report 8337640-3 (Version None)
Quarter: 2012Q2

REPORT INFORMATION
  Report Type: 
  Country: None (occurrence: None)
  Receive Date: 20120504
  Receipt Date: 20120420
  Transmission Date: 20120825
  Serious: Yes (Hospitalization, Other)
  Sender: FDA-Public Use
  Company Number: GB-ROCHE-1061583

PATIENT
  Sex: Male
  Weight: 86 kg

DRUGS (4)
  1. STEROIDS - UNKNOWN TYPE [Concomitant]
  2. ACTEMRA [Suspect]
     Indication: RHEUMATOID ARTHRITIS
     Route: 065
     Dates: start: 20110727
  3. METHOTREXATE [Concomitant]
  4. SULFASALAZINE [Concomitant]

REACTIONS (2)
  - RHEUMATOID ARTHRITIS [None]
  - C-REACTIVE PROTEIN INCREASED [None]
